FAERS Safety Report 21967259 (Version 1)
Quarter: 2023Q1

REPORT INFORMATION
  Report Type: Spontaneous
  Country: ES (occurrence: ES)
  Receive Date: 20230208
  Receipt Date: 20230208
  Transmission Date: 20230417
  Serious: Yes (Other)
  Sender: FDA-Public Use
  Company Number: ES-MYLANLABS-2023M1012268

PATIENT
  Age: 77 Year
  Sex: Female

DRUGS (1)
  1. QUETIAPINE [Suspect]
     Active Substance: QUETIAPINE
     Indication: Behaviour disorder
     Dosage: UNK, RECEIVED AT HIGH DOSES
     Route: 065

REACTIONS (2)
  - Acute hepatic failure [Unknown]
  - Off label use [Unknown]
